FAERS Safety Report 7632883-6 (Version None)
Quarter: 2011Q3

REPORT INFORMATION
  Report Type: 
  Country: None (occurrence: None)
  Receive Date: 20110725
  Receipt Date: 20110712
  Transmission Date: 20111222
  Serious: Yes (Other)
  Sender: FDA-Public Use
  Company Number: PHEH2006US10885

PATIENT
  Sex: Female
  Weight: 51.247 kg

DRUGS (61)
  1. ZITHROMAX [Concomitant]
  2. CHLORHEXIDINE GLUCONATE [Concomitant]
  3. AZITHROMYCIN [Concomitant]
  4. AVELOX [Concomitant]
  5. BENADRYL ^ACHE^ [Concomitant]
  6. ATIVAN [Concomitant]
  7. DECADRON [Concomitant]
  8. INTERFERON [Concomitant]
  9. CLINDAMYCIN HCL [Concomitant]
  10. PROZAC [Concomitant]
  11. HYDROCORTISONE [Concomitant]
  12. PERCOCET [Concomitant]
  13. VINCRISTINE + ADRIAMYCIN + DEXAMETHASONE [Concomitant]
  14. CYTOXAN [Concomitant]
  15. CIPROFLOXACIN [Concomitant]
  16. FERROUS SULFATE TAB [Concomitant]
  17. MEDROXYPROGESTERONE [Concomitant]
  18. PENLAC [Concomitant]
  19. IMITREX ^GLAXO^ [Concomitant]
  20. FEOGEN FA [Concomitant]
  21. NASONEX [Concomitant]
  22. POLYETHYLENE GLYCOL [Concomitant]
  23. MACROBID [Concomitant]
  24. PERIDEX [Concomitant]
  25. ACYCLOVIR [Concomitant]
     Dosage: 800 UNK, UNK
  26. MULTI-VITAMIN [Concomitant]
  27. PAMIDRONATE DISODIUM [Concomitant]
     Dosage: 90 MG, UNK
  28. PREMARIN [Concomitant]
  29. ACETAMINOPHEN W/ CODEINE [Concomitant]
  30. NYSTATIN [Concomitant]
  31. HORMONES [Concomitant]
  32. AXID [Concomitant]
     Dosage: 150 MG, QD
     Route: 048
  33. COMPAZINE [Concomitant]
     Dosage: 10 MG, Q6H, WHEN NEEDED
  34. AREDIA [Suspect]
     Dosage: UNK
     Dates: end: 20030101
  35. ZOMETA [Suspect]
     Dosage: UNK
  36. AMOXICILLIN [Concomitant]
  37. CITALOPRAM HYDROBROMIDE [Concomitant]
  38. EFFEXOR XR [Concomitant]
  39. ALLEGRA [Concomitant]
  40. MESNA [Concomitant]
  41. VITAMIN E [Concomitant]
  42. CALCIUM CARBONATE [Concomitant]
  43. LEVAQUIN [Concomitant]
  44. DETROL                                  /USA/ [Concomitant]
  45. VENLAFAXINE HCL [Concomitant]
  46. OXYCODONE HCL AND ACETAMINOPHEN [Concomitant]
  47. PROVERA [Concomitant]
  48. FERROUS SULFATE TAB [Concomitant]
     Dosage: 325 MG, UNK
  49. FAMCICLOVIR [Concomitant]
     Dosage: 500 MG, TID
     Route: 048
  50. PREDNISONE [Concomitant]
  51. DIFLUNISAL [Concomitant]
  52. ESTRADIOL AND NORETHINDRONE ACETATE [Concomitant]
  53. PERIOGARD [Concomitant]
  54. EVISTA [Concomitant]
  55. CYCLOPHOSPHAMIDE [Concomitant]
  56. BACTRIM [Concomitant]
  57. CELEXA [Concomitant]
  58. CLOBETASOL PROPIONATE [Concomitant]
  59. ACTIVELLA [Concomitant]
  60. CLARITHROMYCIN [Concomitant]
  61. FOLATE SODIUM [Concomitant]

REACTIONS (61)
  - FALL [None]
  - VITREOUS FLOATERS [None]
  - OSTEORADIONECROSIS [None]
  - OSTEOMYELITIS [None]
  - HAEMATURIA [None]
  - NASAL OBSTRUCTION [None]
  - ROAD TRAFFIC ACCIDENT [None]
  - SPINAL OSTEOARTHRITIS [None]
  - OSTEOLYSIS [None]
  - OSTEOPENIA [None]
  - FEMUR FRACTURE [None]
  - HYPERTONIC BLADDER [None]
  - JOINT INJURY [None]
  - BONE DENSITY INCREASED [None]
  - DYSPEPSIA [None]
  - GENERAL PHYSICAL HEALTH DETERIORATION [None]
  - TOOTH DISORDER [None]
  - LOOSE TOOTH [None]
  - INFECTION [None]
  - MULTIPLE MYELOMA [None]
  - NERVOUS SYSTEM DISORDER [None]
  - VENTRICULAR HYPERTROPHY [None]
  - OSTEOPOROSIS [None]
  - IMPAIRED HEALING [None]
  - ANXIETY [None]
  - BONE DISORDER [None]
  - ORAL CAVITY FISTULA [None]
  - MOUTH HAEMORRHAGE [None]
  - DYSGEUSIA [None]
  - PAROSMIA [None]
  - ONYCHOMYCOSIS [None]
  - MENISCUS LESION [None]
  - SPINAL DISORDER [None]
  - CONTUSION [None]
  - EXOSTOSIS [None]
  - SINUSITIS [None]
  - COGNITIVE DISORDER [None]
  - SUBCUTANEOUS NODULE [None]
  - IRON DEFICIENCY [None]
  - OSTEONECROSIS OF JAW [None]
  - DECREASED INTEREST [None]
  - SECONDARY SEQUESTRUM [None]
  - RHINITIS ALLERGIC [None]
  - HYPERKERATOSIS [None]
  - UTERINE MASS [None]
  - NOCTURIA [None]
  - SKIN PAPILLOMA [None]
  - SENSITIVITY OF TEETH [None]
  - FOOT DEFORMITY [None]
  - ENDOMETRIAL HYPERPLASIA [None]
  - CEREBRAL ATROPHY [None]
  - ANAEMIA [None]
  - BRONCHITIS [None]
  - PAIN [None]
  - PHOTOPSIA [None]
  - POSTERIOR CAPSULE OPACIFICATION [None]
  - VISUAL IMPAIRMENT [None]
  - VISUAL ACUITY REDUCED [None]
  - LIP SWELLING [None]
  - HAEMATOMA [None]
  - COLONIC POLYP [None]
